FAERS Safety Report 9619655 (Version 2)
Quarter: 2013Q4

REPORT INFORMATION
  Report Type: Report from Study
  Country: AR (occurrence: AR)
  Receive Date: 20131014
  Receipt Date: 20131121
  Transmission Date: 20140711
  Serious: Yes (Other)
  Sender: FDA-Public Use
  Company Number: PHHY2013AR114962

PATIENT
  Sex: Female

DRUGS (2)
  1. DIOVAN [Suspect]
     Indication: HYPERTENSION
     Dosage: 1 DF, QD
     Route: 048
  2. CORBIS [Concomitant]
     Dosage: UNK UKN, UNK

REACTIONS (4)
  - Breast cancer [Recovering/Resolving]
  - Metastases to lymph nodes [Recovering/Resolving]
  - Osteoarthritis [Unknown]
  - Rheumatic disorder [Unknown]
